FAERS Safety Report 18823845 (Version 1)
Quarter: 2021Q1

REPORT INFORMATION
  Report Type: Spontaneous
  Country: US (occurrence: US)
  Receive Date: 20210201
  Receipt Date: 20210201
  Transmission Date: 20210419
  Serious: Yes (Hospitalization)
  Sender: FDA-Public Use
  Company Number: US-ABBVIE-20K-163-3260083-00

PATIENT
  Sex: Female
  Weight: 86.26 kg

DRUGS (2)
  1. AMLODIPINE [Concomitant]
     Active Substance: AMLODIPINE BESYLATE
     Indication: HYPERTENSION
  2. HUMIRA [Suspect]
     Active Substance: ADALIMUMAB
     Indication: BEHCET^S SYNDROME
     Route: 058
     Dates: start: 2017

REACTIONS (8)
  - Off label use [Not Recovered/Not Resolved]
  - Neck pain [Recovered/Resolved]
  - Device issue [Unknown]
  - Feeling hot [Recovered/Resolved]
  - Injection site pain [Recovered/Resolved]
  - Behcet^s syndrome [Recovered/Resolved with Sequelae]
  - Headache [Recovered/Resolved]
  - Musculoskeletal stiffness [Recovered/Resolved]
